FAERS Safety Report 5046634-5 (Version None)
Quarter: 2006Q3

REPORT INFORMATION
  Report Type: 
  Country: None (occurrence: None)
  Receive Date: 20060707
  Receipt Date: 20060707
  Transmission Date: 20061208
  Serious: Yes (Hospitalization)
  Sender: FDA-Public Use
  Company Number: None

PATIENT
  Age: 54 Year
  Sex: Male

DRUGS (8)
  1. VANCOMYCIN [Suspect]
     Indication: SUBCUTANEOUS ABSCESS
     Dosage: 1 GM IV Q12 H
     Route: 042
     Dates: start: 20060502, end: 20060506
  2. TRIMETHOPRIM + SULFAMETHOXAZOLE [Suspect]
     Indication: SUBCUTANEOUS ABSCESS
     Dosage: 1 TABLET PO BID
     Route: 048
     Dates: start: 20060506, end: 20060517
  3. ANTI EMBOLISM STOCKING MEDIUM USE PAIR [Concomitant]
  4. CLOTRIMAZOLE [Concomitant]
  5. HCTZ 50/TRIAMTERENE [Concomitant]
  6. NICOTINE [Concomitant]
  7. . [Concomitant]
  8. TRAMADOL HCL [Concomitant]

REACTIONS (2)
  - BLOOD CREATININE INCREASED [None]
  - DRUG TOXICITY [None]
